FAERS Safety Report 8061325-4 (Version None)
Quarter: 2012Q1

REPORT INFORMATION
  Report Type: 
  Country: None (occurrence: None)
  Receive Date: 20120120
  Receipt Date: 20110913
  Transmission Date: 20120608
  Serious: No
  Sender: FDA-Public Use
  Company Number: US-ALLERGAN-1112153US

PATIENT
  Age: 76 Year
  Sex: Female

DRUGS (3)
  1. OTC  TEARS [Concomitant]
  2. PATADAY [Concomitant]
  3. RESTASIS [Suspect]
     Indication: DRY EYE
     Dosage: 2 GTT, BID
     Route: 047

REACTIONS (3)
  - EYE IRRITATION [None]
  - DRY EYE [None]
  - EYELID IRRITATION [None]
